FAERS Safety Report 25714794 (Version 1)
Quarter: 2025Q3

REPORT INFORMATION
  Report Type: Spontaneous
  Country: CN (occurrence: CN)
  Receive Date: 20250822
  Receipt Date: 20250822
  Transmission Date: 20251020
  Serious: Yes (Hospitalization)
  Sender: ALEXION PHARMACEUTICALS
  Company Number: CN-ASTRAZENECA-202508CHN012206CN

PATIENT
  Age: 58 Year
  Sex: Female

DRUGS (1)
  1. DAPAGLIFLOZIN [Suspect]
     Active Substance: DAPAGLIFLOZIN
     Indication: Diabetes mellitus
     Dosage: 1 DOSAGE FORM, QD
     Dates: start: 20230601, end: 20250810

REACTIONS (4)
  - Hypotension [Recovering/Resolving]
  - Dizziness [Unknown]
  - Syncope [Unknown]
  - Palpitations [Unknown]

NARRATIVE: CASE EVENT DATE: 20250810
